FAERS Safety Report 19517528 (Version 1)
Quarter: 2021Q3

REPORT INFORMATION
  Report Type: Spontaneous
  Country: US (occurrence: US)
  Receive Date: 20210712
  Receipt Date: 20210712
  Transmission Date: 20211014
  Serious: No
  Sender: FDA-Public Use
  Company Number: US-ASTRAZENECA-2021A580853

PATIENT

DRUGS (3)
  1. VERZENIO [Suspect]
     Active Substance: ABEMACICLIB
     Route: 065
  2. FASLODEX [Suspect]
     Active Substance: FULVESTRANT
     Route: 030
  3. IBRANCE [Suspect]
     Active Substance: PALBOCICLIB
     Dosage: 125.0MG UNKNOWN
     Route: 048
     Dates: start: 20210602

REACTIONS (5)
  - Asthenia [Unknown]
  - Ageusia [Unknown]
  - Alopecia [Unknown]
  - Rash [Unknown]
  - Hot flush [Unknown]
